FAERS Safety Report 12603610 (Version 2)
Quarter: 2016Q3

REPORT INFORMATION
  Report Type: Spontaneous
  Country: ES (occurrence: ES)
  Receive Date: 20160728
  Receipt Date: 20160801
  Transmission Date: 20161109
  Serious: Yes (Life-Threatening, Other)
  Sender: FDA-Public Use
  Company Number: ES-KALEO, INC-2015SA219799

PATIENT
  Age: 53 Year
  Sex: 0

DRUGS (1)
  1. EPINEPHRINE. [Suspect]
     Active Substance: EPINEPHRINE
     Indication: PROPHYLAXIS
     Dosage: UNKNOWN, UNKNOWN
     Route: 065

REACTIONS (4)
  - Bradycardia [Recovered/Resolved]
  - Cardiomyopathy [Recovered/Resolved]
  - Hypertension [Recovered/Resolved]
  - Condition aggravated [Recovered/Resolved]
